FAERS Safety Report 8563522-8 (Version None)
Quarter: 2012Q3

REPORT INFORMATION
  Report Type: 
  Country: None (occurrence: None)
  Receive Date: 20120802
  Receipt Date: 20120731
  Transmission Date: 20120928
  Serious: Yes (Other)
  Sender: FDA-Public Use
  Company Number: NL-AMGEN-NLDSP2012038638

PATIENT
  Age: 66 Year
  Sex: Female

DRUGS (8)
  1. VITAMIN D [Concomitant]
     Dosage: 400 IU, UNK
  2. CALCIUM [Concomitant]
     Dosage: 500 MG, UNK
  3. IBUPROFEN [Concomitant]
  4. ACETAMINOPHEN [Concomitant]
  5. XGEVA [Suspect]
     Indication: METASTASES TO BONE
     Dosage: 120 MG, Q4WK
     Route: 058
     Dates: start: 20120308, end: 20120531
  6. LYRICA [Concomitant]
  7. OXYCONTIN [Concomitant]
  8. FRAGMIN [Concomitant]

REACTIONS (1)
  - CEREBROVASCULAR ACCIDENT [None]
